FAERS Safety Report 7348324-2 (Version None)
Quarter: 2011Q1

REPORT INFORMATION
  Report Type: 
  Country: None (occurrence: None)
  Receive Date: 20110311
  Receipt Date: 20110309
  Transmission Date: 20110831
  Serious: Yes (Life-Threatening, Hospitalization)
  Sender: FDA-Public Use
  Company Number: PL-ABBOTT-11P-129-0710498-00

PATIENT
  Sex: Male
  Weight: 37 kg

DRUGS (4)
  1. STEROIDS [Concomitant]
     Indication: JUVENILE ARTHRITIS
     Dosage: 0.5 MG DAILY
     Route: 048
     Dates: start: 20040101
  2. ARECHIN [Concomitant]
     Indication: JUVENILE ARTHRITIS
     Dosage: 250MG DAILY
     Route: 048
     Dates: start: 20090101, end: 20101029
  3. HUMIRA [Suspect]
     Indication: JUVENILE ARTHRITIS
     Route: 058
     Dates: start: 20101029, end: 20101029
  4. METHOTREXATE [Concomitant]
     Indication: JUVENILE ARTHRITIS
     Route: 048
     Dates: start: 20050101, end: 20101029

REACTIONS (3)
  - MULTI-ORGAN FAILURE [None]
  - ABDOMINAL PAIN [None]
  - DIARRHOEA [None]
